FAERS Safety Report 7636383-9 (Version None)
Quarter: 2011Q3

REPORT INFORMATION
  Report Type: 
  Country: None (occurrence: None)
  Receive Date: 20110726
  Receipt Date: 20110718
  Transmission Date: 20111222
  Serious: Yes (Other)
  Sender: FDA-Public Use
  Company Number: TH-GLAXOSMITHKLINE-B0734810A

PATIENT
  Age: 23 Year
  Sex: Female

DRUGS (3)
  1. DIGOXIN [Suspect]
     Indication: ATRIAL FLUTTER
     Route: 015
  2. FLECAINIDE ACETATE [Suspect]
     Indication: ATRIAL FLUTTER
     Route: 015
  3. SOTALOL HCL [Suspect]
     Indication: ATRIAL FLUTTER
     Dosage: 160MG PER DAY
     Route: 064

REACTIONS (3)
  - MATERNAL EXPOSURE DURING PREGNANCY [None]
  - LIVE BIRTH [None]
  - PREMATURE BABY [None]
